FAERS Safety Report 6652881-9 (Version None)
Quarter: 2010Q1

REPORT INFORMATION
  Report Type: 
  Country: None (occurrence: None)
  Receive Date: 20100326
  Receipt Date: 20100317
  Transmission Date: 20100710
  Serious: Yes (Other)
  Sender: FDA-Public Use
  Company Number: FR-JNJFOC-20100304905

PATIENT
  Age: 64 Year
  Sex: Female

DRUGS (2)
  1. REMICADE [Suspect]
     Indication: ANKYLOSING SPONDYLITIS
     Route: 042
  2. REMICADE [Suspect]
     Dosage: 11 INFUSIONS
     Route: 042

REACTIONS (5)
  - ASTHENIA [None]
  - BREAST HYPERPLASIA [None]
  - DRUG EFFECT DECREASED [None]
  - HEADACHE [None]
  - LENTIGO [None]
